FAERS Safety Report 16736418 (Version 1)
Quarter: 2019Q3

REPORT INFORMATION
  Report Type: Spontaneous
  Country: US (occurrence: US)
  Receive Date: 20190823
  Receipt Date: 20190823
  Transmission Date: 20191005
  Serious: Yes (Other)
  Sender: FDA-Public Use
  Company Number: US-REGENERON PHARMACEUTICALS, INC.-2019-48685

PATIENT

DRUGS (1)
  1. LIBTAYO [Suspect]
     Active Substance: CEMIPLIMAB-RWLC
     Indication: NEOPLASM MALIGNANT
     Dosage: UNK
     Dates: start: 2019

REACTIONS (3)
  - Muscular weakness [Unknown]
  - Polyneuropathy [Unknown]
  - Off label use [Unknown]
